FAERS Safety Report 9380504 (Version 2)
Quarter: 2013Q3

REPORT INFORMATION
  Report Type: Report from Study
  Country: US (occurrence: US)
  Receive Date: 20130702
  Receipt Date: 20130724
  Transmission Date: 20140515
  Serious: No
  Sender: FDA-Public Use
  Company Number: US-VERTEX PHARMACEUTICALS INC-2013-007618

PATIENT
  Age: 47 Year
  Sex: Female
  Weight: 110 kg

DRUGS (12)
  1. VX-950 (TELAPREVIR) [Suspect]
     Indication: HEPATITIS C
     Dosage: 750 MG, TID
     Route: 048
     Dates: start: 20130502
  2. PEGASYS [Suspect]
     Indication: HEPATITIS C
     Dosage: 180 ?G, QW
     Route: 058
     Dates: start: 20130502
  3. PEGASYS [Suspect]
     Dosage: 135 ?G, QW
     Route: 058
  4. RIBAVIRIN [Suspect]
     Indication: HEPATITIS C
     Dosage: 600 MG, QD
     Route: 048
     Dates: start: 20130502
  5. RIBAVIRIN [Suspect]
     Dosage: 200 MG, QD
     Route: 048
  6. XANAX [Concomitant]
  7. OXYCONTIN [Concomitant]
  8. AMBIEN [Concomitant]
  9. COMPAZINE [Concomitant]
  10. EXAPRO [Concomitant]
  11. AMLODIPINE [Concomitant]
  12. LEVETIRACETAM [Concomitant]

REACTIONS (1)
  - White blood cell count decreased [Not Recovered/Not Resolved]
